FAERS Safety Report 22088312 (Version 1)
Quarter: 2023Q1

REPORT INFORMATION
  Report Type: Spontaneous
  Country: US (occurrence: US)
  Receive Date: 20230313
  Receipt Date: 20230313
  Transmission Date: 20230418
  Serious: Yes (Death)
  Sender: FDA-Public Use
  Company Number: US-JNJFOC-20230313627

PATIENT
  Age: 4 Month
  Sex: Female

DRUGS (1)
  1. BENADRYL [Suspect]
     Active Substance: DIPHENHYDRAMINE HYDROCHLORIDE
     Indication: Product used for unknown indication
     Dosage: LETHAL DOSE OF DIPHENHYDRAMINE
     Route: 065

REACTIONS (3)
  - Overdose [Fatal]
  - Cardiac arrest [Fatal]
  - Vomiting [Fatal]

NARRATIVE: CASE EVENT DATE: 20130301
